FAERS Safety Report 8912660 (Version 1)
Quarter: 2012Q4

REPORT INFORMATION
  Report Type: 
  Country: DK (occurrence: FR)
  Receive Date: 20121116
  Receipt Date: 20121116
  Transmission Date: 20130627
  Serious: Yes (Other)
  Sender: FDA-Public Use
  Company Number: FR-FRI-1000040410

PATIENT
  Age: 47 Year
  Sex: Female

DRUGS (9)
  1. ESCITALOPRAM [Suspect]
     Route: 048
     Dates: start: 20120726, end: 20120826
  2. PREVISCAN [Suspect]
     Dosage: 10 mg
     Route: 048
     Dates: start: 20120726
  3. CALCIPARINE [Suspect]
     Dosage: 15 Kiu iu (1000s)
     Route: 058
     Dates: start: 20120726, end: 20120813
  4. OLMETEC [Concomitant]
  5. CLIMASTON [Concomitant]
  6. LEVOTHYROX [Concomitant]
  7. VERATRAN [Concomitant]
  8. VOLIBRIS [Concomitant]
  9. REVATIO [Concomitant]

REACTIONS (2)
  - International normalised ratio increased [Not Recovered/Not Resolved]
  - Haematuria [Not Recovered/Not Resolved]
